FAERS Safety Report 19714803 (Version 6)
Quarter: 2022Q2

REPORT INFORMATION
  Report Type: Report from Study
  Country: US (occurrence: US)
  Receive Date: 20210818
  Receipt Date: 20220610
  Transmission Date: 20220720
  Serious: Yes (Other)
  Sender: FDA-Public Use
  Company Number: NVSC2021US179171

PATIENT
  Age: 43 Year
  Sex: Female
  Weight: 71.655 kg

DRUGS (1)
  1. KESIMPTA [Suspect]
     Active Substance: OFATUMUMAB
     Indication: Product used for unknown indication
     Dosage: 0.4 ML, QMO
     Route: 030
     Dates: start: 20210717

REACTIONS (6)
  - Cataract [Unknown]
  - Multiple sclerosis [Unknown]
  - Vision blurred [Unknown]
  - Balance disorder [Unknown]
  - Spinal pain [Unknown]
  - Incorrect route of product administration [Unknown]

NARRATIVE: CASE EVENT DATE: 20210731
